FAERS Safety Report 7821465-9 (Version None)
Quarter: 2011Q4

REPORT INFORMATION
  Report Type: 
  Country: None (occurrence: None)
  Receive Date: 20111018
  Receipt Date: 20111003
  Transmission Date: 20120403
  Serious: No
  Sender: FDA-Public Use
  Company Number: US-ROXANE LABORATORIES, INC.-2011-RO-00983RO

PATIENT
  Sex: Female
  Weight: 63 kg

DRUGS (5)
  1. SYNTHROID [Concomitant]
  2. EXEMESTANE [Suspect]
     Indication: BREAST CANCER
     Dosage: 25 MG
     Route: 048
     Dates: start: 20110629, end: 20110730
  3. ASCORBIC ACID [Concomitant]
  4. MULTI-VITAMIN [Concomitant]
  5. LORAZEPAM [Concomitant]

REACTIONS (8)
  - ASTHENIA [None]
  - HEADACHE [None]
  - URINARY RETENTION [None]
  - WEIGHT INCREASED [None]
  - ABDOMINAL DISTENSION [None]
  - PAIN IN EXTREMITY [None]
  - MICTURITION URGENCY [None]
  - BREAST PAIN [None]
